FAERS Safety Report 19925824 (Version 1)
Quarter: 2021Q4

REPORT INFORMATION
  Report Type: Spontaneous
  Country: US (occurrence: US)
  Receive Date: 20211006
  Receipt Date: 20211006
  Transmission Date: 20220303
  Serious: Yes (Other)
  Sender: FDA-Public Use
  Company Number: US-NOVARTISPH-NVSC2021US223762

PATIENT

DRUGS (2)
  1. BASILIXIMAB [Suspect]
     Active Substance: BASILIXIMAB
     Indication: Colitis ulcerative
     Dosage: UNK (20 MG OR 40 MG, ON DAY 1 AND END OF WEEK 2 AND 4, TOTAL OF 3 DOSES AT 2 WEEK)
     Route: 065
  2. PREDNISONE [Concomitant]
     Active Substance: PREDNISONE
     Indication: Colitis ulcerative
     Dosage: 30 MG, QD (DAY 1 AND CONTINUED THROUGH WEEK 2)
     Route: 065

REACTIONS (2)
  - Autoimmune haemolytic anaemia [Recovered/Resolved]
  - Product use in unapproved indication [Unknown]
